FAERS Safety Report 21010702 (Version 1)
Quarter: 2022Q2

REPORT INFORMATION
  Report Type: Spontaneous
  Country: US (occurrence: None)
  Receive Date: 20220625
  Receipt Date: 20220625
  Transmission Date: 20220721
  Serious: Yes (unspecified)
  Sender: FDA-Public Use
  Company Number: None

PATIENT
  Age: 42 Year
  Sex: Female

DRUGS (3)
  1. COSMETICS [Suspect]
     Active Substance: COSMETICS
     Indication: Acrochordon excision
     Route: 061
     Dates: start: 20220306, end: 20220306
  2. SYNTHROID [Concomitant]
  3. WELLBUTRIN [Concomitant]
     Active Substance: BUPROPION HYDROCHLORIDE

REACTIONS (4)
  - Burning sensation [None]
  - Feeling abnormal [None]
  - Scar [None]
  - Skin discolouration [None]

NARRATIVE: CASE EVENT DATE: 20220306
